FAERS Safety Report 13855684 (Version 3)
Quarter: 2018Q2

REPORT INFORMATION
  Report Type: Spontaneous
  Country: US (occurrence: US)
  Receive Date: 20170810
  Receipt Date: 20180531
  Transmission Date: 20180711
  Serious: Yes (Other)
  Sender: FDA-Public Use
  Company Number: US-VIFOR (INTERNATIONAL) INC.-VIT-2017-06833

PATIENT
  Sex: Female

DRUGS (15)
  1. KIONEX [Concomitant]
     Active Substance: SODIUM POLYSTYRENE SULFONATE
  2. PANTOPRAZOLE SODIUM SESQUIHYDRATE [Concomitant]
     Active Substance: PANTOPRAZOLE SODIUM
  3. COREG [Concomitant]
     Active Substance: CARVEDILOL
  4. TRAMADOL HYDROCHLORIDE. [Concomitant]
     Active Substance: TRAMADOL HYDROCHLORIDE
  5. TOUJEO [Concomitant]
     Active Substance: INSULIN GLARGINE
  6. VITAMINS NOS [Concomitant]
     Active Substance: VITAMINS
  7. DIGOXIN. [Concomitant]
     Active Substance: DIGOXIN
  8. KAYEXALATE [Concomitant]
     Active Substance: SODIUM POLYSTYRENE SULFONATE
  9. VELTASSA [Suspect]
     Active Substance: PATIROMER
     Indication: HYPERKALAEMIA
     Route: 065
     Dates: start: 201705
  10. VELTASSA [Suspect]
     Active Substance: PATIROMER
     Route: 048
     Dates: start: 20170621
  11. LASIX [Concomitant]
     Active Substance: FUROSEMIDE
  12. GABAPENTIN. [Concomitant]
     Active Substance: GABAPENTIN
  13. SENNA LAXATIVE [Concomitant]
     Active Substance: SENNOSIDES
  14. COLECALCIFEROL [Concomitant]
     Active Substance: CHOLECALCIFEROL
  15. BIOTIN [Concomitant]
     Active Substance: BIOTIN

REACTIONS (3)
  - Urinary tract infection staphylococcal [Unknown]
  - Product preparation error [Unknown]
  - Constipation [Recovering/Resolving]

NARRATIVE: CASE EVENT DATE: 2017
